FAERS Safety Report 6820202-4 (Version None)
Quarter: 2010Q3

REPORT INFORMATION
  Report Type: 
  Country: None (occurrence: None)
  Receive Date: 20100707
  Receipt Date: 20100625
  Transmission Date: 20110219
  Serious: Yes (Other)
  Sender: FDA-Public Use
  Company Number: US-PFIZER INC-2010037292

PATIENT
  Sex: Female
  Weight: 74.83 kg

DRUGS (3)
  1. TOVIAZ [Suspect]
     Indication: HYPERTONIC BLADDER
     Dosage: 2 MG, DAILY
     Route: 048
     Dates: start: 20100501, end: 20100501
  2. VERAPAMIL [Concomitant]
     Indication: HYPERTENSION
     Dosage: UNK
  3. SYNTHROID [Concomitant]
     Dosage: UNK

REACTIONS (3)
  - DRY EYE [None]
  - ERYTHEMA [None]
  - EYE SWELLING [None]
